FAERS Safety Report 8630477 (Version 4)
Quarter: 2013Q1

REPORT INFORMATION
  Report Type: Spontaneous
  Country: US (occurrence: US)
  Receive Date: 20120622
  Receipt Date: 20130123
  Transmission Date: 20140127
  Serious: Yes (Other)
  Sender: FDA-Public Use
  Company Number: US-ROCHE-1080737

PATIENT
  Age: 17 Year
  Sex: Female
  Weight: 86.26 kg

DRUGS (4)
  1. ACCUTANE [Suspect]
     Indication: ACNE
     Route: 065
     Dates: start: 199809, end: 199902
  2. ACCUTANE [Suspect]
     Route: 048
     Dates: start: 200001, end: 200005
  3. ACCUTANE [Suspect]
     Route: 065
     Dates: start: 2001, end: 20011031
  4. ORTHO TRI CYCLEN [Concomitant]
     Route: 065
     Dates: start: 1998

REACTIONS (9)
  - Colitis ulcerative [Unknown]
  - Inflammatory bowel disease [Unknown]
  - Anxiety [Unknown]
  - Depression [Unknown]
  - Suicidal ideation [Unknown]
  - Dry throat [Recovered/Resolved]
  - Dry skin [Unknown]
  - Upper respiratory tract infection [Unknown]
  - Epistaxis [Unknown]
